FAERS Safety Report 5592291-9 (Version None)
Quarter: 2007Q4

REPORT INFORMATION
  Report Type: 
  Country: None (occurrence: None)
  Receive Date: 20071217
  Receipt Date: 20071026
  Transmission Date: 20080405
  Serious: Yes (Other)
  Sender: FDA-Public Use
  Company Number: BDI-010430

PATIENT
  Age: 48 Year
  Sex: Female
  Weight: 100 kg

DRUGS (2)
  1. MULTIHANCE [Suspect]
     Indication: BREAST CANCER
     Dosage: 20 ML ONCE IV
     Route: 038
     Dates: start: 20071025, end: 20071025
  2. MULTIHANCE [Suspect]
     Indication: NUCLEAR MAGNETIC RESONANCE IMAGING
     Dosage: 20 ML ONCE IV
     Route: 038
     Dates: start: 20071025, end: 20071025

REACTIONS (1)
  - HYPERSENSITIVITY [None]
